FAERS Safety Report 6206111-2 (Version None)
Quarter: 2009Q2

REPORT INFORMATION
  Report Type: 
  Country: None (occurrence: None)
  Receive Date: 20090526
  Receipt Date: 20090514
  Transmission Date: 20091009
  Serious: Yes (Hospitalization)
  Sender: FDA-Public Use
  Company Number: 8044768

PATIENT
  Age: 65 Year
  Sex: Female
  Weight: 87 kg

DRUGS (18)
  1. CERTOLIZUMAB [Suspect]
     Indication: RHEUMATOID ARTHRITIS
     Dosage: 200 MG 1/2W SC
     Route: 058
     Dates: start: 20060119
  2. CERTOLIZUMAB [Suspect]
     Indication: RHEUMATOID ARTHRITIS
     Dosage: 400 MG 1/2W SC
     Route: 058
     Dates: start: 20080706, end: 20090326
  3. CERTOLIZUMAB [Suspect]
     Indication: RHEUMATOID ARTHRITIS
     Dosage: SC
     Route: 058
     Dates: start: 20080422
  4. METHOTREXATE [Concomitant]
  5. FOLATE [Concomitant]
  6. ZOLOFT [Concomitant]
  7. TEMAZEPAM [Concomitant]
  8. DITROPAN [Concomitant]
  9. COMBIVENT [Concomitant]
  10. ALLEGRA [Concomitant]
  11. CELEBREX [Concomitant]
  12. COZAAR [Concomitant]
  13. GLUCOSAMINE W/CHONDROITIN [Concomitant]
  14. MULTI-VITAMIN [Concomitant]
  15. CALCIUM [Concomitant]
  16. NORCO [Concomitant]
  17. AMARYL [Concomitant]
  18. LIPITOR [Concomitant]

REACTIONS (3)
  - ANIMAL BITE [None]
  - CELLULITIS [None]
  - TENOSYNOVITIS [None]
